FAERS Safety Report 21222344 (Version 1)
Quarter: 2022Q3

REPORT INFORMATION
  Report Type: Spontaneous
  Country: US (occurrence: US)
  Receive Date: 20220817
  Receipt Date: 20220817
  Transmission Date: 20221027
  Serious: Yes (Hospitalization, Other)
  Sender: FDA-Public Use
  Company Number: US-SPECGX-T202102619

PATIENT
  Sex: Female
  Weight: 78 kg

DRUGS (10)
  1. OXYCODONE [Suspect]
     Active Substance: OXYCODONE
     Indication: Pain
     Dosage: 60 MILLIGRAM, QD
     Route: 048
  2. PERCOCET [Suspect]
     Active Substance: ACETAMINOPHEN\OXYCODONE HYDROCHLORIDE
     Indication: Pain
     Dosage: 30 MILLIGRAM, TID
     Route: 048
  3. BUPRENORPHINE [Suspect]
     Active Substance: BUPRENORPHINE
     Indication: Product used for unknown indication
     Dosage: UNK
     Route: 065
  4. NEURONTIN [Concomitant]
     Active Substance: GABAPENTIN
     Indication: Product used for unknown indication
     Dosage: 300 MILLIGRAM, TID
     Route: 065
  5. METHYLPREDNISOLONE [Concomitant]
     Active Substance: METHYLPREDNISOLONE
     Indication: Product used for unknown indication
     Dosage: 4 MILLIGRAM, QID
     Route: 065
  6. NAPROXEN SODIUM [Concomitant]
     Active Substance: NAPROXEN SODIUM
     Indication: Product used for unknown indication
     Dosage: 500 MILLIGRAM, PRN, 1-2 TAB TWICE DAILY
     Route: 065
  7. ROBAXIN [Concomitant]
     Active Substance: METHOCARBAMOL
     Indication: Pain
     Dosage: 500 MILLIGRAM, PRN, 1-2 TAB EVERY SIX HOURS AS NEEDED
     Route: 065
  8. MOTRIN IB [Concomitant]
     Active Substance: IBUPROFEN
     Indication: Pain
     Dosage: 800 MILLIGRAM, PRN, 1 TAB EVERY 8 HOURS AS NEEDED
     Route: 065
  9. RISPERDAL [Concomitant]
     Active Substance: RISPERIDONE
     Indication: Mood altered
     Dosage: 2 MILLIGRAM, 1 TAB DAILY AT BEDTIME, INCREASE TO 2 TABLETS AFTER 7 DAYS
     Route: 065
  10. VISTARIL (HYDROXYZINE HYDROCHLORIDE) [Concomitant]
     Active Substance: HYDROXYZINE HYDROCHLORIDE
     Indication: Anxiety
     Dosage: 25 MILLIGRAM, PRN, 1 OR 2 CAP EVERY 6 HOURS AS NEEDED, MAXIMUM OF 6 CAPSULES OR 150MG IN 24 HRS
     Route: 065

REACTIONS (5)
  - Drug use disorder [Unknown]
  - Disease recurrence [Unknown]
  - Drug dependence [Unknown]
  - Withdrawal syndrome [Unknown]
  - Injury [Unknown]
